FAERS Safety Report 6097897-9 (Version None)
Quarter: 2009Q1

REPORT INFORMATION
  Report Type: 
  Country: None (occurrence: None)
  Receive Date: 20090225
  Receipt Date: 20090213
  Transmission Date: 20090719
  Serious: Yes (Hospitalization, Other)
  Sender: FDA-Public Use
  Company Number: 2009AL000962

PATIENT
  Sex: Female

DRUGS (3)
  1. FEVERALL [Suspect]
     Dosage: 16 X1
  2. PAROXETINE HCL [Concomitant]
  3. ALCOHOL [Concomitant]

REACTIONS (4)
  - ALCOHOL USE [None]
  - FEELING ABNORMAL [None]
  - OVERDOSE [None]
  - PARANOIA [None]
